FAERS Safety Report 25235937 (Version 3)
Quarter: 2025Q4

REPORT INFORMATION
  Report Type: Spontaneous
  Country: US (occurrence: US)
  Receive Date: 20250424
  Receipt Date: 20251119
  Transmission Date: 20260117
  Serious: Yes (Other)
  Sender: ELI LILLY AND COMPANY
  Company Number: US-ELI_LILLY_AND_COMPANY-US202504015544

PATIENT
  Sex: Male

DRUGS (6)
  1. KISUNLA [Suspect]
     Active Substance: DONANEMAB-AZBT
     Indication: Dementia Alzheimer^s type
     Dosage: UNK, UNKNOWN
     Route: 042
     Dates: start: 202503
  2. KISUNLA [Suspect]
     Active Substance: DONANEMAB-AZBT
     Dosage: UNK, UNKNOWN (2ND INFUSION)
     Route: 042
     Dates: start: 20250415
  3. KISUNLA [Suspect]
     Active Substance: DONANEMAB-AZBT
     Dosage: 350 MG, MONTHLY (1/M) (RESTARTED)
     Route: 065
     Dates: start: 20250723
  4. KISUNLA [Suspect]
     Active Substance: DONANEMAB-AZBT
     Dosage: 350 MG, MONTHLY (1/M)
     Route: 065
     Dates: start: 20250902
  5. KISUNLA [Suspect]
     Active Substance: DONANEMAB-AZBT
     Dosage: 350 MG, MONTHLY (1/M)
     Route: 065
     Dates: start: 20250930
  6. KISUNLA [Suspect]
     Active Substance: DONANEMAB-AZBT
     Dosage: 350 MG, MONTHLY (1/M)
     Route: 065
     Dates: start: 20251104

REACTIONS (5)
  - Amyloid related imaging abnormality-oedema/effusion [Recovered/Resolved]
  - Amyloid related imaging abnormality-microhaemorrhages and haemosiderin deposits [Recovering/Resolving]
  - Cerebral atrophy [Unknown]
  - Hippocampal atrophy [Unknown]
  - Cerebral ischaemia [Unknown]
